FAERS Safety Report 4270003-9 (Version None)
Quarter: 2004Q1

REPORT INFORMATION
  Report Type: 
  Country: None (occurrence: None)
  Receive Date: 20040113
  Receipt Date: 20040113
  Transmission Date: 20041129
  Serious: No
  Sender: FDA-Public Use
  Company Number: None

PATIENT
  Age: 87 Year
  Sex: Male
  Weight: 86.1834 kg

DRUGS (5)
  1. DANAZOL [Suspect]
     Indication: ANAEMIA
     Dosage: 100 MG TWICE A DAY
  2. LOSARTAN [Concomitant]
  3. HYDROCHLOROTHIAZIDE [Concomitant]
  4. ASPIRIN [Concomitant]
  5. DISOPYRAMIDE [Concomitant]

REACTIONS (19)
  - ABDOMINAL DISTENSION [None]
  - ANOREXIA [None]
  - ASTHENIA [None]
  - CHROMATURIA [None]
  - CONTUSION [None]
  - COUGH [None]
  - DIABETES MELLITUS [None]
  - DIFFICULTY IN WALKING [None]
  - DYSPNOEA EXERTIONAL [None]
  - EPISTAXIS [None]
  - ERYTHEMA [None]
  - FATIGUE [None]
  - FEELING ABNORMAL [None]
  - HEART RATE DECREASED [None]
  - HYPERTENSION [None]
  - JOINT SWELLING [None]
  - RESTLESSNESS [None]
  - VISION BLURRED [None]
  - WEIGHT INCREASED [None]
